FAERS Safety Report 9476569 (Version 1)
Quarter: 2013Q3

REPORT INFORMATION
  Report Type: Spontaneous
  Country: CN (occurrence: CN)
  Receive Date: 20130826
  Receipt Date: 20130826
  Transmission Date: 20140515
  Serious: No
  Sender: FDA-Public Use
  Company Number: CN-JNJFOC-20130810518

PATIENT
  Age: 40 Year
  Sex: Female

DRUGS (1)
  1. DUROGESIC D-TRANS [Suspect]
     Indication: HEADACHE
     Route: 062

REACTIONS (1)
  - Drug administered at inappropriate site [Unknown]
